FAERS Safety Report 6396308-3 (Version None)
Quarter: 2009Q4

REPORT INFORMATION
  Report Type: 
  Country: None (occurrence: None)
  Receive Date: 20091012
  Receipt Date: 20070327
  Transmission Date: 20100525
  Serious: Yes (Other)
  Sender: FDA-Public Use
  Company Number: US-ASTRAZENECA-2006UW12327

PATIENT
  Age: 22620 Day
  Sex: Female
  Weight: 91.6 kg

DRUGS (16)
  1. SEROQUEL [Suspect]
     Dosage: 100 MG-200 MG DISPENSED
     Route: 048
     Dates: start: 20001201
  2. ZYPREXA [Suspect]
     Dosage: 2.5 MG-5 MG DISPENSED
     Dates: start: 20001101
  3. ZOLOFT [Concomitant]
     Dosage: 50 MG - 150 MG
     Dates: start: 19940907
  4. HYDROXYZINE PAM [Concomitant]
     Dosage: 25 MG DISPENSED
     Dates: start: 19990913
  5. LOXAPINE [Concomitant]
     Dosage: 5 MG - 50 MG DISPENSED
     Dates: start: 19990727
  6. GEODON [Concomitant]
     Dosage: 20 MG - 40 MG
     Dates: start: 20020110
  7. BENZTROPINE MESYLATE [Concomitant]
     Dosage: 1 MG - 2 MG
     Dates: start: 19950201
  8. VALPROIC [Concomitant]
     Dosage: 250 MG DISPENSED
     Dates: start: 19970212
  9. AMANTADINE HCL [Concomitant]
     Dosage: 100 MG DISPENSED
     Dates: start: 20030304
  10. WELLBUTRIN SR [Concomitant]
     Dosage: 100 MG DISPENSED
     Dates: start: 20011212
  11. ZOCOR [Concomitant]
     Dates: start: 20040914
  12. GLYBURIDE [Concomitant]
     Dosage: 1.25 MG - 7.5 MG
     Route: 048
     Dates: start: 19990216
  13. ASPIRIN [Concomitant]
     Dosage: 81 MG - 325 MG
     Route: 048
     Dates: start: 19990414
  14. ATACAND [Concomitant]
     Dosage: 2 MG - 4 MG
     Route: 048
     Dates: start: 20050519
  15. GLUCOPHAGE [Concomitant]
     Route: 048
     Dates: start: 19990414
  16. DETROL [Concomitant]
     Dosage: 2 MG DISPENSED
     Route: 048
     Dates: start: 20040914

REACTIONS (2)
  - DIABETES MELLITUS [None]
  - DIABETIC NEPHROPATHY [None]
